FAERS Safety Report 7334575-X (Version None)
Quarter: 2011Q1

REPORT INFORMATION
  Report Type: 
  Country: None (occurrence: None)
  Receive Date: 20110307
  Receipt Date: 20101019
  Transmission Date: 20110831
  Serious: No
  Sender: FDA-Public Use
  Company Number: A0882660A

PATIENT
  Age: 73 Year
  Sex: Female
  Weight: 65.9 kg

DRUGS (2)
  1. ROPINIROLE [Suspect]
     Indication: RESTLESS LEGS SYNDROME
     Dosage: .5MG TWICE PER DAY
     Route: 048
     Dates: start: 20100907, end: 20100921
  2. NO CONCURRENT MEDICATION [Concomitant]

REACTIONS (3)
  - PAIN [None]
  - RASH [None]
  - ASTHENIA [None]
